FAERS Safety Report 5706010-6 (Version None)
Quarter: 2008Q2

REPORT INFORMATION
  Report Type: 
  Country: None (occurrence: None)
  Receive Date: 20080415
  Receipt Date: 20080408
  Transmission Date: 20081010
  Serious: Yes (Death)
  Sender: FDA-Public Use
  Company Number: US-TEVA-168889USA

PATIENT
  Age: 52 Year
  Sex: Female

DRUGS (1)
  1. IFOSFAMIDE W/MESNA 50 MG/ML, 100 MG/ML [Suspect]
     Dosage: 50 MG/100 MG

REACTIONS (1)
  - NEUTROPENIC SEPSIS [None]
